FAERS Safety Report 4717119-8 (Version None)
Quarter: 2005Q3

REPORT INFORMATION
  Report Type: 
  Country: None (occurrence: None)
  Receive Date: 20050715
  Receipt Date: 20050705
  Transmission Date: 20060218
  Serious: Yes (Other)
  Sender: FDA-Public Use
  Company Number: HQWYE977606JUL05

PATIENT

DRUGS (3)
  1. RAPAMUNE [Suspect]
     Indication: PROPHYLAXIS AGAINST TRANSPLANT REJECTION
     Dosage: SEE IMAGE
  2. RAPAMUNE [Suspect]
     Indication: PROPHYLAXIS AGAINST TRANSPLANT REJECTION
     Dosage: SEE IMAGE
  3. UNSPECIFIED ANTHHYPERLIPIDEMIC (UNSPECIFIED ANTIHYPERLIPIDEMIC) [Concomitant]

REACTIONS (1)
  - INTRACARDIAC THROMBUS [None]
